FAERS Safety Report 7868066-4 (Version None)
Quarter: 2011Q4

REPORT INFORMATION
  Report Type: 
  Country: None (occurrence: None)
  Receive Date: 20111028
  Receipt Date: 20111024
  Transmission Date: 20120403
  Serious: Yes (Hospitalization)
  Sender: FDA-Public Use
  Company Number: HR-ABBOTT-11P-216-0867851-00

PATIENT
  Age: 22 Year
  Sex: Male

DRUGS (2)
  1. ZOLOFT [Concomitant]
     Indication: PRODUCT USED FOR UNKNOWN INDICATION
  2. DEPAKENE [Suspect]
     Indication: PRODUCT USED FOR UNKNOWN INDICATION

REACTIONS (4)
  - INTENTIONAL OVERDOSE [None]
  - SOPOR [None]
  - AXILLARY NERVE INJURY [None]
  - ASTHENIA [None]
